FAERS Safety Report 16023397 (Version 1)
Quarter: 2019Q1

REPORT INFORMATION
  Report Type: Report from Study
  Country: US (occurrence: US)
  Receive Date: 20190301
  Receipt Date: 20190301
  Transmission Date: 20190418
  Serious: Yes (Hospitalization)
  Sender: FDA-Public Use
  Company Number: US-SA-2019SA053485

PATIENT
  Age: 50 Year
  Sex: Male

DRUGS (1)
  1. INSULIN GLARGINE [Suspect]
     Active Substance: INSULIN GLARGINE
     Dosage: UNK UNK, UNK
     Dates: start: 20000101

REACTIONS (2)
  - Upper limb fracture [Unknown]
  - Malaise [Unknown]

NARRATIVE: CASE EVENT DATE: 20190221
